FAERS Safety Report 5827116-7 (Version None)
Quarter: 2008Q3

REPORT INFORMATION
  Report Type: 
  Country: None (occurrence: None)
  Receive Date: 20080729
  Receipt Date: 20080729
  Transmission Date: 20090109
  Serious: Yes (Hospitalization)
  Sender: FDA-Public Use
  Company Number: None

PATIENT
  Sex: Male
  Weight: 65 kg

DRUGS (5)
  1. CYCLOPHOSPHAMIDE [Suspect]
     Dosage: 1365 MG
  2. DOXIL [Suspect]
     Dosage: 73 MG
  3. PREDNISONE [Suspect]
     Dosage: 100 MG
  4. RITUXIMAB (MOAB C2B8 ANTI CD20, CHIMERIC) [Suspect]
     Dosage: 683 MG
  5. VINCRISTINE SULFATE [Suspect]
     Dosage: 2 MG

REACTIONS (8)
  - BRAIN OEDEMA [None]
  - CONFUSIONAL STATE [None]
  - CSF LYMPHOCYTE COUNT INCREASED [None]
  - DEHYDRATION [None]
  - DISORIENTATION [None]
  - LYMPHOMA [None]
  - VISION BLURRED [None]
  - VOMITING [None]
